FAERS Safety Report 18501819 (Version 4)
Quarter: 2021Q1

REPORT INFORMATION
  Report Type: Spontaneous
  Country: US (occurrence: US)
  Receive Date: 20201113
  Receipt Date: 20210215
  Transmission Date: 20210419
  Serious: Yes (Hospitalization)
  Sender: FDA-Public Use
  Company Number: US-ULTRAGENYX PHARMACEUTICAL INC.-US-UGNX-20-00203

PATIENT
  Age: 9 Year
  Sex: Female
  Weight: 38 kg

DRUGS (5)
  1. DOJOLVI [Suspect]
     Active Substance: TRIHEPTANOIN
     Indication: LONG-CHAIN ACYL-COENZYME A DEHYDROGENASE DEFICIENCY
     Route: 048
     Dates: start: 20200929
  2. PRILOSEC [Concomitant]
     Active Substance: OMEPRAZOLE MAGNESIUM
     Indication: PRODUCT USED FOR UNKNOWN INDICATION
     Dosage: SUSPENDED RELEASE PRODUCT
  3. DOJOLVI [Suspect]
     Active Substance: TRIHEPTANOIN
     Dosage: TAKING ^A LITTLE BIT OR NOTHING^ AND ^NOT COMPLAINT^
     Dates: start: 20200930, end: 20201002
  4. DOJOLVI [Suspect]
     Active Substance: TRIHEPTANOIN
     Dates: start: 20201002
  5. LISINOPRIL. [Concomitant]
     Active Substance: LISINOPRIL
     Indication: PRODUCT USED FOR UNKNOWN INDICATION

REACTIONS (2)
  - Treatment noncompliance [Recovered/Resolved]
  - Cardiac failure [Recovered/Resolved]

NARRATIVE: CASE EVENT DATE: 20200930
